FAERS Safety Report 4658674-6 (Version None)
Quarter: 2005Q2

REPORT INFORMATION
  Report Type: 
  Country: None (occurrence: None)
  Receive Date: 20050510
  Receipt Date: 20050510
  Transmission Date: 20051028
  Serious: Yes (Hospitalization)
  Sender: FDA-Public Use
  Company Number: None

PATIENT
  Age: 79 Year
  Sex: Female

DRUGS (10)
  1. TIMENTIN [Suspect]
     Indication: FEBRILE NEUTROPENIA
     Dosage: 3.1 GM   Q6H   INTRAVENOU
     Route: 042
     Dates: start: 20050206, end: 20050307
  2. VANCOMYCIN [Concomitant]
  3. VITAMIN K [Concomitant]
  4. MILK OF MAGNESIA [Concomitant]
  5. GENTAMICIN [Concomitant]
  6. NEUPOGEN [Concomitant]
  7. LOVENOX [Concomitant]
  8. WARFARIN SODIUM [Concomitant]
  9. TYLENOL (CAPLET) [Concomitant]
  10. DURAGESIC-100 [Concomitant]

REACTIONS (1)
  - HEPATOTOXICITY [None]
